APPROVED DRUG PRODUCT: ERYTHROMYCIN
Active Ingredient: ERYTHROMYCIN
Strength: 500MG
Dosage Form/Route: TABLET;ORAL
Application: A219691 | Product #002 | TE Code: AB
Applicant: ABON PHARMACEUTICALS LLC
Approved: Sep 23, 2025 | RLD: No | RS: No | Type: RX